FAERS Safety Report 5748549-3 (Version None)
Quarter: 2008Q2

REPORT INFORMATION
  Report Type: 
  Country: None (occurrence: None)
  Receive Date: 20080521
  Receipt Date: 20080502
  Transmission Date: 20081010
  Serious: Yes (Hospitalization)
  Sender: FDA-Public Use
  Company Number: CHPA2008US07758

PATIENT
  Age: 55 Year
  Sex: Male
  Weight: 97.1 kg

DRUGS (1)
  1. VOLTAREN [Suspect]
     Indication: MUSCULOSKELETAL PAIN
     Dosage: 4 G, BID, TOPICAL
     Route: 061
     Dates: start: 20080501, end: 20080501

REACTIONS (11)
  - ABDOMINAL PAIN UPPER [None]
  - DIARRHOEA [None]
  - DIZZINESS [None]
  - DRUG ADMINISTERED AT INAPPROPRIATE SITE [None]
  - HEADACHE [None]
  - MALAISE [None]
  - MYOCARDIAL INFARCTION [None]
  - NAUSEA [None]
  - THROAT TIGHTNESS [None]
  - UNEVALUABLE EVENT [None]
  - VOMITING [None]
